FAERS Safety Report 9087606 (Version 1)
Quarter: 2013Q1

REPORT INFORMATION
  Report Type: Spontaneous
  Country: US (occurrence: US)
  Receive Date: 20130201
  Receipt Date: 20130201
  Transmission Date: 20140127
  Serious: No
  Sender: FDA-Public Use
  Company Number: US-GALDERMA-US-GDP-12413445

PATIENT
  Age: 16 Year
  Sex: Female
  Weight: 52 kg

DRUGS (5)
  1. EPIDUO [Suspect]
     Indication: ACNE
     Route: 061
     Dates: start: 20120227, end: 20120417
  2. CETAPHIL [Suspect]
     Route: 061
     Dates: start: 20120227
  3. CETAPHIL [Suspect]
     Route: 061
     Dates: start: 20120227
  4. AMITRIPTYLINE [Concomitant]
     Indication: GASTRIC DISORDER
     Route: 048
     Dates: start: 2009
  5. MULTI-VITAMIN [Concomitant]

REACTIONS (1)
  - Acne [Recovered/Resolved]
